FAERS Safety Report 18663556 (Version 1)
Quarter: 2020Q4

REPORT INFORMATION
  Report Type: Spontaneous
  Country: US (occurrence: US)
  Receive Date: 20201224
  Receipt Date: 20201224
  Transmission Date: 20210114
  Serious: Yes (Life-Threatening, Hospitalization, Other)
  Sender: FDA-Public Use
  Company Number: US-GILEAD-2020-0510329

PATIENT
  Age: 59 Year
  Sex: Male

DRUGS (36)
  1. CHLORHEXIDINE [Concomitant]
     Active Substance: CHLORHEXIDINE
  2. TOCILIZUMAB. [Concomitant]
     Active Substance: TOCILIZUMAB
  3. ATIVAN [Concomitant]
     Active Substance: LORAZEPAM
  4. LOVENOX [LEVOFLOXACIN] [Concomitant]
     Active Substance: LEVOFLOXACIN
  5. FUROSEMIDE. [Concomitant]
     Active Substance: FUROSEMIDE
  6. CEFEPIME [Concomitant]
     Active Substance: CEFEPIME HYDROCHLORIDE
  7. GABAPENTIN. [Concomitant]
     Active Substance: GABAPENTIN
  8. DULOXETINE. [Concomitant]
     Active Substance: DULOXETINE
  9. METOPROLOL. [Concomitant]
     Active Substance: METOPROLOL
  10. LORAZEPAM. [Concomitant]
     Active Substance: LORAZEPAM
  11. PROPOFOL. [Concomitant]
     Active Substance: PROPOFOL
     Dosage: UNK
     Dates: start: 20200517
  12. MACROGOL [Concomitant]
     Active Substance: POLYETHYLENE GLYCOLS
  13. NALOXONE [Concomitant]
     Active Substance: NALOXONE
  14. METHYLPREDNISOLONE. [Concomitant]
     Active Substance: METHYLPREDNISOLONE
  15. LEVETIRACETAM. [Concomitant]
     Active Substance: LEVETIRACETAM
  16. CEFTRIAXONE. [Concomitant]
     Active Substance: CEFTRIAXONE
  17. DEXTROMETHORPHAN [Concomitant]
     Active Substance: DEXTROMETHORPHAN
  18. VANCOMYCIN [Concomitant]
     Active Substance: VANCOMYCIN
  19. NICOTINE. [Concomitant]
     Active Substance: NICOTINE
  20. NALOXONE HYDROCHLORIDE. [Concomitant]
     Active Substance: NALOXONE HYDROCHLORIDE
     Dosage: UNK
     Dates: start: 20200509, end: 20200518
  21. DOCUSATE;SENNA [Concomitant]
     Active Substance: DOCUSATE\SENNOSIDES
  22. SALBUTAMOL SULFATE [Concomitant]
     Active Substance: ALBUTEROL SULFATE
  23. PARACETAMOL [Concomitant]
     Active Substance: ACETAMINOPHEN
  24. ACETAMINOPHEN. [Concomitant]
     Active Substance: ACETAMINOPHEN
  25. SODIUM POLYSTYRENE SULFONATE. [Concomitant]
     Active Substance: SODIUM POLYSTYRENE SULFONATE
  26. AZITHROMYCIN ANHYDROUS. [Concomitant]
     Active Substance: AZITHROMYCIN ANHYDROUS
  27. VEKLURY [Suspect]
     Active Substance: REMDESIVIR
     Indication: COVID-19
     Dosage: UNK
     Route: 042
     Dates: start: 20200517, end: 20200526
  28. PANTOPRAZOLE [Concomitant]
     Active Substance: PANTOPRAZOLE
  29. SUBOXONE [Concomitant]
     Active Substance: BUPRENORPHINE HYDROCHLORIDE\NALOXONE HYDROCHLORIDE
  30. LACTULOSE. [Concomitant]
     Active Substance: LACTULOSE
  31. MIDAZOLAM. [Concomitant]
     Active Substance: MIDAZOLAM
  32. APREMILAST [Concomitant]
     Active Substance: APREMILAST
  33. FERROUS SULFATE. [Concomitant]
     Active Substance: FERROUS SULFATE
     Dosage: UNK
     Dates: start: 20200510, end: 20200519
  34. MEROPENEM. [Concomitant]
     Active Substance: MEROPENEM
  35. FENTANYL. [Concomitant]
     Active Substance: FENTANYL
  36. DUONEB [Concomitant]
     Active Substance: ALBUTEROL SULFATE\IPRATROPIUM BROMIDE

REACTIONS (16)
  - Retroperitoneal haematoma [Recovering/Resolving]
  - Iron deficiency [Not Recovered/Not Resolved]
  - Haemoglobin decreased [Recovering/Resolving]
  - Cytokine storm [Not Recovered/Not Resolved]
  - Septic shock [Recovering/Resolving]
  - Hyperkalaemia [Recovered/Resolved]
  - Bradycardia [Not Recovered/Not Resolved]
  - Disseminated intravascular coagulation [Recovering/Resolving]
  - Pneumonia [Not Recovered/Not Resolved]
  - Liver injury [Recovering/Resolving]
  - Hypotension [Recovered/Resolved]
  - Acute kidney injury [Not Recovered/Not Resolved]
  - Swelling [Not Recovered/Not Resolved]
  - Hyperglycaemia [Not Recovered/Not Resolved]
  - Lactic acidosis [Recovered/Resolved]
  - Shock haemorrhagic [Recovering/Resolving]

NARRATIVE: CASE EVENT DATE: 20200510
